FAERS Safety Report 6056893-8 (Version None)
Quarter: 2009Q1

REPORT INFORMATION
  Report Type: 
  Country: None (occurrence: None)
  Receive Date: 20090129
  Receipt Date: 20090119
  Transmission Date: 20090719
  Serious: Yes (Hospitalization)
  Sender: FDA-Public Use
  Company Number: B0555006A

PATIENT
  Age: 31 Year
  Sex: Male

DRUGS (3)
  1. ZEFFIX [Suspect]
     Indication: HEPATITIS B
     Route: 048
     Dates: start: 20060101, end: 20080101
  2. ENTECAVIR [Suspect]
     Indication: HEPATITIS B
     Route: 065
     Dates: start: 20060101
  3. HEPSERA [Suspect]
     Indication: HEPATITIS B
     Route: 065
     Dates: start: 20060101, end: 20080101

REACTIONS (3)
  - HEADACHE [None]
  - SYNCOPE [None]
  - VASCULITIS CEREBRAL [None]
